FAERS Safety Report 10593816 (Version 1)
Quarter: 2014Q4

REPORT INFORMATION
  Report Type: Spontaneous
  Country: DE (occurrence: DE)
  Receive Date: 20141119
  Receipt Date: 20141119
  Transmission Date: 20150529
  Serious: Yes (Other)
  Sender: FDA-Public Use
  Company Number: DE-TEVA-521693GER

PATIENT
  Age: 32 Year
  Sex: Female
  Weight: 72 kg

DRUGS (3)
  1. PROCORALAN [Suspect]
     Active Substance: IVABRADINE
     Indication: ARRHYTHMIA
     Dosage: 10 MILLIGRAM DAILY; THERAPY PROBABLY STOPPED
     Route: 048
     Dates: start: 20131030, end: 20131217
  2. LYRICA [Suspect]
     Active Substance: PREGABALIN
     Indication: ANXIETY DISORDER
     Dosage: 150 MILLIGRAM DAILY; UNKNOWN IF ONGOING
     Route: 048
     Dates: start: 20131030, end: 20131217
  3. CARVEDILOL. [Suspect]
     Active Substance: CARVEDILOL
     Indication: ARRHYTHMIA
     Dosage: 6 MILLIGRAM DAILY; THERAPY PROBABLY ONGOING
     Route: 048
     Dates: start: 20131030, end: 20131217

REACTIONS (1)
  - Abortion spontaneous [Recovered/Resolved]
